FAERS Safety Report 18604443 (Version 5)
Quarter: 2021Q3

REPORT INFORMATION
  Report Type: Spontaneous
  Country: PT (occurrence: PT)
  Receive Date: 20201211
  Receipt Date: 20210729
  Transmission Date: 20211014
  Serious: Yes (Hospitalization, Other)
  Sender: FDA-Public Use
  Company Number: PT-AUROBINDO-AUR-APL-2020-060209

PATIENT
  Age: 65 Year
  Sex: Male

DRUGS (3)
  1. AMOXICILLIN+CLAVULANIC ACID [Suspect]
     Active Substance: AMOXICILLIN\CLAVULANIC ACID
     Dosage: UNK
     Route: 065
  2. AMOXICILLIN+CLAVULANIC ACID [Suspect]
     Active Substance: AMOXICILLIN\CLAVULANIC ACID
     Indication: TONSILLITIS
     Dosage: CYCLICAL
     Route: 065
  3. AMOXICILLIN+CLAVULANIC ACID [Suspect]
     Active Substance: AMOXICILLIN\CLAVULANIC ACID
     Dosage: 1 DOSAGE FORM(1 DOSAGE FORM (1 DOSAGE FORM= 875 MG AMOXICILOIN WITH 125 CLAVULANIC ACID  ) )
     Route: 048

REACTIONS (16)
  - Drug-induced liver injury [Recovered/Resolved]
  - Pruritus [Recovered/Resolved]
  - Abdominal pain [Recovered/Resolved]
  - Hepatitis [Unknown]
  - Cholestasis [Unknown]
  - Choluria [Recovered/Resolved]
  - Biliary tract disorder [Unknown]
  - Jaundice [Recovered/Resolved]
  - Off label use [Unknown]
  - Hepatitis cholestatic [Recovered/Resolved]
  - Faeces pale [Unknown]
  - Hepatic enzyme increased [Recovering/Resolving]
  - Decreased appetite [Recovered/Resolved]
  - Deficiency of bile secretion [Recovered/Resolved]
  - Hyperbilirubinaemia [Unknown]
  - Product use in unapproved indication [Unknown]
